FAERS Safety Report 9669835 (Version 1)
Quarter: 2013Q4

REPORT INFORMATION
  Report Type: Spontaneous
  Country: US (occurrence: US)
  Receive Date: 20131105
  Receipt Date: 20131105
  Transmission Date: 20140711
  Serious: Yes (Hospitalization, Other)
  Sender: FDA-Public Use
  Company Number: US-AMGEN-USASP2013077038

PATIENT
  Age: 84 Year
  Sex: Male

DRUGS (3)
  1. NEULASTA [Suspect]
     Indication: PRODUCT USED FOR UNKNOWN INDICATION
     Dosage: UNK
     Route: 065
  2. CABAZITAXEL [Concomitant]
     Indication: PROSTATE CANCER
     Dosage: UNK
  3. CHEMOTHERAPEUTICS [Concomitant]
     Indication: PROSTATE CANCER
     Dosage: UNK

REACTIONS (5)
  - Septic shock [Unknown]
  - Renal failure [Unknown]
  - Prostate cancer [Unknown]
  - Colitis [Unknown]
  - Febrile neutropenia [Unknown]
